FAERS Safety Report 20383225 (Version 3)
Quarter: 2022Q2

REPORT INFORMATION
  Report Type: Spontaneous
  Country: JP (occurrence: JP)
  Receive Date: 20220127
  Receipt Date: 20220414
  Transmission Date: 20220721
  Serious: Yes (Death, Life-Threatening, Hospitalization, Other)
  Sender: FDA-Public Use
  Company Number: JP-PFIZER INC-202200080565

PATIENT
  Age: 75 Year
  Sex: Female
  Weight: 45 kg

DRUGS (6)
  1. IBRANCE [Suspect]
     Active Substance: PALBOCICLIB
     Indication: Breast cancer metastatic
     Dosage: 125 MG, 1X/DAY
     Route: 048
     Dates: start: 202112, end: 202201
  2. LETROZOLE [Concomitant]
     Active Substance: LETROZOLE
     Indication: Pleural effusion
     Dosage: 2.5 MG, 1X/DAY
     Route: 048
     Dates: start: 20211221, end: 20220106
  3. LETROZOLE [Concomitant]
     Active Substance: LETROZOLE
     Indication: Malignant pleural effusion
  4. TELMISARTAN [Concomitant]
     Active Substance: TELMISARTAN
     Dosage: 40 MG, 1X/DAY
     Route: 048
  5. ETIZOLAM [Concomitant]
     Active Substance: ETIZOLAM
     Dosage: 0.5 MG, 1X/DAY
     Route: 048
  6. LANSOPRAZOLE [Concomitant]
     Active Substance: LANSOPRAZOLE
     Dosage: 15 MG, AS NEEDED
     Route: 048

REACTIONS (5)
  - Pneumonia [Fatal]
  - Neutropenia [Fatal]
  - Condition aggravated [Fatal]
  - Respiratory failure [Fatal]
  - Myelosuppression [Unknown]

NARRATIVE: CASE EVENT DATE: 20220106
